FAERS Safety Report 15059377 (Version 1)
Quarter: 2018Q2

REPORT INFORMATION
  Report Type: Spontaneous
  Country: US (occurrence: US)
  Receive Date: 20180625
  Receipt Date: 20180625
  Transmission Date: 20180711
  Serious: No
  Sender: FDA-Public Use
  Company Number: US-MYLANLABS-2018M1039702

PATIENT
  Sex: Male
  Weight: 136 kg

DRUGS (1)
  1. VERAPAMIL [Suspect]
     Active Substance: VERAPAMIL HYDROCHLORIDE
     Indication: HEART RATE IRREGULAR
     Dosage: ONE IN THE MORNING AND ONE AT NIGHT
     Route: 048

REACTIONS (1)
  - Weight increased [Not Recovered/Not Resolved]
